FAERS Safety Report 12433222 (Version 3)
Quarter: 2016Q3

REPORT INFORMATION
  Report Type: Spontaneous
  Country: JP (occurrence: JP)
  Receive Date: 20160603
  Receipt Date: 20160906
  Transmission Date: 20161109
  Serious: Yes (Death, Hospitalization, Other)
  Sender: FDA-Public Use
  Company Number: JP-ELI_LILLY_AND_COMPANY-JP201606000246

PATIENT
  Age: 75 Year
  Sex: Male
  Weight: 42 kg

DRUGS (1)
  1. ERBITUX [Suspect]
     Active Substance: CETUXIMAB
     Indication: LIP AND/OR ORAL CAVITY CANCER
     Dosage: UNK UNK, UNKNOWN
     Route: 042
     Dates: start: 20160427, end: 20160511

REACTIONS (5)
  - Dehydration [Unknown]
  - Cardiac failure [Fatal]
  - Liver function test increased [Unknown]
  - Diarrhoea [Unknown]
  - Pneumonia [Recovered/Resolved]

NARRATIVE: CASE EVENT DATE: 20160516
